FAERS Safety Report 6228927-9 (Version None)
Quarter: 2009Q2

REPORT INFORMATION
  Report Type: 
  Country: None (occurrence: None)
  Receive Date: 20090615
  Receipt Date: 20090605
  Transmission Date: 20091009
  Serious: Yes (Disabling)
  Sender: FDA-Public Use
  Company Number: CA-ROCHE-636664

PATIENT
  Age: 43 Year
  Sex: Female
  Weight: 76 kg

DRUGS (2)
  1. TAMIFLU [Suspect]
     Route: 048
     Dates: start: 20090601, end: 20090602
  2. HYDROCHLOROTHIAZIDE [Concomitant]
     Indication: HYPERTENSION
     Dosage: STOP DATE: JUNE 2009
     Route: 048

REACTIONS (2)
  - BLOOD PRESSURE INCREASED [None]
  - DYSPEPSIA [None]
